FAERS Safety Report 11417664 (Version 2)
Quarter: 2015Q3

REPORT INFORMATION
  Report Type: Report from Study
  Country: AU (occurrence: AU)
  Receive Date: 20150825
  Receipt Date: 20150914
  Transmission Date: 20151125
  Serious: Yes (Hospitalization)
  Sender: FDA-Public Use
  Company Number: PHHY2014AU136380

PATIENT
  Age: 58 Year
  Sex: Female

DRUGS (3)
  1. AUGMENTIN DUO [Suspect]
     Active Substance: AMOXICILLIN\CLAVULANATE POTASSIUM
     Indication: INFECTION
     Dosage: 1 DF, BID (500/125 MG)
     Route: 048
     Dates: start: 20150606, end: 20150618
  2. SODIUM THIOSULPHATE [Concomitant]
     Indication: VASCULAR CALCIFICATION
     Dosage: 25 G, UNK
     Route: 065
  3. MYFORTIC [Suspect]
     Active Substance: MYCOPHENOLATE SODIUM
     Indication: SYSTEMIC LUPUS ERYTHEMATOSUS
     Dosage: 360 MG, QD
     Route: 065
     Dates: start: 20140124, end: 20140204

REACTIONS (20)
  - Nausea [Recovered/Resolved]
  - Peripheral ischaemia [Recovering/Resolving]
  - Pain [Recovering/Resolving]
  - Gangrene [Recovering/Resolving]
  - Cellulitis [Recovering/Resolving]
  - Haematoma [Not Recovered/Not Resolved]
  - Vomiting [Unknown]
  - Vomiting [Recovered/Resolved]
  - Fall [Recovering/Resolving]
  - Heparin-induced thrombocytopenia [Recovering/Resolving]
  - Nausea [Unknown]
  - Localised infection [Recovering/Resolving]
  - Squamous cell carcinoma [Recovering/Resolving]
  - Necrosis [Recovering/Resolving]
  - Pancytopenia [Recovering/Resolving]
  - Sepsis [Recovering/Resolving]
  - Chills [Recovering/Resolving]
  - Hypotension [Recovering/Resolving]
  - Pyrexia [Recovering/Resolving]
  - Hypersensitivity [Unknown]

NARRATIVE: CASE EVENT DATE: 20140128
